FAERS Safety Report 5449996-X (Version None)
Quarter: 2007Q3

REPORT INFORMATION
  Report Type: 
  Country: None (occurrence: None)
  Receive Date: 20070912
  Receipt Date: 20070831
  Transmission Date: 20080115
  Serious: Yes (Life-Threatening)
  Sender: FDA-Public Use
  Company Number: US-KINGPHARMUSA00001-K200701124

PATIENT

DRUGS (3)
  1. ALTACE [Suspect]
     Indication: BLOOD PRESSURE INCREASED
     Dosage: 5 MG, QD
     Route: 048
  2. BENDROFLUAZIDE [Suspect]
     Indication: BLOOD PRESSURE INCREASED
     Dosage: 2.5 MG, QD
     Route: 048
  3. FLEET MICRO-ENEMA [Suspect]
     Route: 048
     Dates: start: 20070731, end: 20070801

REACTIONS (2)
  - CONVULSION [None]
  - WATER INTOXICATION [None]
